FAERS Safety Report 8887653 (Version 1)
Quarter: 2012Q4

REPORT INFORMATION
  Report Type: Spontaneous
  Country: US (occurrence: None)
  Receive Date: 20121101
  Receipt Date: 20121101
  Transmission Date: 20130627
  Serious: Yes (Hospitalization)
  Sender: FDA-Public Use
  Company Number: None

PATIENT
  Age: 57 Year
  Sex: Female
  Weight: 66.4 kg

DRUGS (12)
  1. BORTEZOMIB [Suspect]
     Indication: MULTIPLE MYELOMA
     Dosage: 2.17 mg q3week, sq
     Dates: start: 20121009, end: 20121016
  2. DEXAMETHASONE [Concomitant]
  3. ZOLEDRONIC ACID [Concomitant]
  4. MORPHINE [Concomitant]
  5. DIPHENOXYLATE/ATROPINE [Concomitant]
  6. TRAZODONE [Concomitant]
  7. MAGNESIUM HYDROXIDE [Concomitant]
  8. GABAPENTIN [Concomitant]
  9. PROMETHAXINE [Concomitant]
  10. HYDROCORTISONE [Concomitant]
  11. CITALOPRAM [Concomitant]
  12. ACYCLOVIR [Concomitant]

REACTIONS (7)
  - Mental status changes [None]
  - Nasopharyngitis [None]
  - Hypotension [None]
  - Colitis [None]
  - Caecitis [None]
  - Large intestine perforation [None]
  - Unresponsive to stimuli [None]
